FAERS Safety Report 5287170-0 (Version None)
Quarter: 2007Q1

REPORT INFORMATION
  Report Type: 
  Country: None (occurrence: None)
  Receive Date: 20070330
  Receipt Date: 20070315
  Transmission Date: 20070707
  Serious: Yes (Other)
  Sender: FDA-Public Use
  Company Number: IMP_2791_2007

PATIENT
  Age: 9 Year
  Sex: Female
  Weight: 29.4838 kg

DRUGS (1)
  1. CLARITIN-D [Suspect]
     Indication: HYPERSENSITIVITY
     Dosage: DF ONCE PO
     Route: 048
     Dates: start: 20070226

REACTIONS (3)
  - CHEST PAIN [None]
  - FEELING JITTERY [None]
  - WRONG TECHNIQUE IN DRUG USAGE PROCESS [None]
